FAERS Safety Report 7090801-6 (Version None)
Quarter: 2010Q4

REPORT INFORMATION
  Report Type: 
  Country: None (occurrence: None)
  Receive Date: 20101012
  Receipt Date: 20091110
  Transmission Date: 20110411
  Serious: Yes (Hospitalization)
  Sender: FDA-Public Use
  Company Number: 1000009263

PATIENT
  Age: 26 Year
  Sex: Female

DRUGS (4)
  1. LEXAPRO [Suspect]
     Indication: POSTPARTUM DEPRESSION
     Dosage: 10 MG (10 MG, 1 IN 1 D), ORAL
     Route: 048
     Dates: start: 20090901, end: 20091003
  2. ADVAIR (INHALANT) [Concomitant]
  3. ALBUTEROL (INHALANT) [Concomitant]
  4. MULTI-VITAMIN [Concomitant]

REACTIONS (2)
  - HEPATITIS [None]
  - PANCREATITIS [None]
